FAERS Safety Report 6297444-2 (Version None)
Quarter: 2009Q3

REPORT INFORMATION
  Report Type: 
  Country: None (occurrence: None)
  Receive Date: 20090805
  Receipt Date: 20090323
  Transmission Date: 20100115
  Serious: No
  Sender: FDA-Public Use
  Company Number: US-BAYER-200840558NA

PATIENT
  Age: 28 Year
  Sex: Female

DRUGS (1)
  1. ULTRAVIST SINGLE USE [Suspect]
     Indication: DRUG USE FOR UNKNOWN INDICATION
     Dosage: TOTAL DAILY DOSE: 100 ML  UNIT DOSE: 100 ML
     Dates: start: 20081121, end: 20081121

REACTIONS (1)
  - URTICARIA [None]
